FAERS Safety Report 12802561 (Version 3)
Quarter: 2017Q1

REPORT INFORMATION
  Report Type: Report from Study
  Country: IT (occurrence: IT)
  Receive Date: 20161003
  Receipt Date: 20170316
  Transmission Date: 20170428
  Serious: Yes (Other)
  Sender: FDA-Public Use
  Company Number: IT-BRISTOL-MYERS SQUIBB COMPANY-BMS-2016-081679

PATIENT
  Age: 53 Year
  Sex: Male

DRUGS (1)
  1. NIVOLUMAB [Suspect]
     Active Substance: NIVOLUMAB
     Indication: NON-SMALL CELL LUNG CANCER
     Dosage: 3 MG/KG, Q2WK
     Route: 042
     Dates: start: 20151021

REACTIONS (5)
  - Pain in extremity [Unknown]
  - Dyspnoea [Unknown]
  - Lymphoedema [Unknown]
  - Cholelithiasis [Unknown]
  - Biliary colic [Recovered/Resolved]

NARRATIVE: CASE EVENT DATE: 20151025
